FAERS Safety Report 7574517-5 (Version None)
Quarter: 2011Q2

REPORT INFORMATION
  Report Type: 
  Country: None (occurrence: None)
  Receive Date: 20110627
  Receipt Date: 20110601
  Transmission Date: 20111010
  Serious: Yes (Other)
  Sender: FDA-Public Use
  Company Number: US-BAYER-2011-018321

PATIENT
  Age: 47 Year
  Sex: Female
  Weight: 86 kg

DRUGS (13)
  1. OXYCONTIN [Concomitant]
     Dosage: UNK UNK, PRN
  2. PERCOCET [Concomitant]
     Dosage: UNK UNK, PRN
  3. FISH OIL [Concomitant]
  4. PREDNISONE [Concomitant]
     Indication: CONTRAST MEDIA ALLERGY
     Dosage: 50 MG, UNK
     Route: 048
  5. DROSPIRENONE AND ETHINYL ESTRADIOL [Suspect]
     Indication: CONTRACEPTION
     Dosage: UNK
     Dates: start: 20080619, end: 20090207
  6. TOPICORT [Concomitant]
     Indication: RASH
  7. FIANCEE 15% (ATELIC GEL) [Concomitant]
     Indication: ROSACEA
     Dosage: UNK UNK, BID
  8. ZOMIG [Concomitant]
     Indication: MIGRAINE
  9. ASPIRIN [Concomitant]
  10. PROTONIX [Concomitant]
     Dosage: 40 MG, BID
  11. YASMIN [Suspect]
     Indication: CONTRACEPTION
     Dosage: UNK
     Dates: start: 20071015, end: 20080601
  12. ZOMIG [Concomitant]
     Indication: HEADACHE
     Dosage: 2.5 MG, PRN
     Route: 048
     Dates: start: 20030301
  13. VALIUM [Concomitant]
     Dosage: 5 MG, TID

REACTIONS (5)
  - PAIN [None]
  - DEEP VEIN THROMBOSIS [None]
  - PAINFUL RESPIRATION [None]
  - PULMONARY EMBOLISM [None]
  - INJURY [None]
